FAERS Safety Report 15544266 (Version 2)
Quarter: 2019Q2

REPORT INFORMATION
  Report Type: Spontaneous
  Country: US (occurrence: US)
  Receive Date: 20181024
  Receipt Date: 20190515
  Transmission Date: 20190711
  Serious: Yes (Death, Life-Threatening, Hospitalization)
  Sender: FDA-Public Use
  Company Number: US-SUN PHARMACEUTICAL INDUSTRIES LTD-2018US-188855

PATIENT
  Age: 62 Year
  Sex: Male

DRUGS (5)
  1. FLUPHENAZINE DECONATE [Concomitant]
     Indication: PRODUCT USED FOR UNKNOWN INDICATION
     Dosage: 100 MILLIGRAM, 3/WEEK
     Route: 030
  2. CLOZAPINE. [Suspect]
     Active Substance: CLOZAPINE
     Dosage: 75 MILLIGRAM, DAILY
     Route: 065
  3. CLOZAPINE. [Suspect]
     Active Substance: CLOZAPINE
     Indication: SCHIZOPHRENIA
     Dosage: 12.5 MILLIGRAM, DAILY
     Route: 065
  4. FLUPHENAZINE DECONATE [Concomitant]
     Dosage: 5 MILLIGRAM, BID
     Route: 048
  5. ALPRAZOLAM. [Concomitant]
     Active Substance: ALPRAZOLAM
     Indication: ANXIETY
     Dosage: 1 MILLIGRAM, BID
     Route: 065

REACTIONS (10)
  - Myocarditis [Fatal]
  - Pneumonia aspiration [Unknown]
  - Salivary hypersecretion [Unknown]
  - Acute respiratory failure [Unknown]
  - Cardiac failure congestive [Unknown]
  - Gastrointestinal infection [Unknown]
  - Intestinal ischaemia [Unknown]
  - Metabolic acidosis [Unknown]
  - Circulatory collapse [Fatal]
  - Pulmonary embolism [Unknown]
